FAERS Safety Report 21039599 (Version 2)
Quarter: 2022Q3

REPORT INFORMATION
  Report Type: Spontaneous
  Country: US (occurrence: None)
  Receive Date: 20220704
  Receipt Date: 20220811
  Transmission Date: 20221026
  Serious: Yes (Other)
  Sender: FDA-Public Use
  Company Number: 2022A238665

PATIENT
  Age: 25232 Day
  Sex: Female
  Weight: 91.6 kg

DRUGS (1)
  1. IMFINZI [Suspect]
     Active Substance: DURVALUMAB
     Indication: Non-small cell lung cancer
     Route: 042
     Dates: start: 20220422

REACTIONS (20)
  - Oxygen saturation decreased [Unknown]
  - Brain oedema [Unknown]
  - Blood glucose increased [Not Recovered/Not Resolved]
  - Pneumonitis [Unknown]
  - Pneumonia [Unknown]
  - Diplopia [Unknown]
  - Blindness [Unknown]
  - Arthralgia [Unknown]
  - Diarrhoea [Unknown]
  - Weight increased [Unknown]
  - Incontinence [Unknown]
  - Fatigue [Unknown]
  - Glaucoma [Unknown]
  - Photophobia [Unknown]
  - Constipation [Unknown]
  - Myalgia [Unknown]
  - Pyrexia [Recovered/Resolved]
  - Ocular hyperaemia [Unknown]
  - Dry eye [Unknown]
  - Vision blurred [Unknown]

NARRATIVE: CASE EVENT DATE: 20220423
